FAERS Safety Report 6427548-2 (Version None)
Quarter: 2009Q4

REPORT INFORMATION
  Report Type: 
  Country: None (occurrence: None)
  Receive Date: 20091030
  Receipt Date: 20091012
  Transmission Date: 20100525
  Serious: Yes (Hospitalization)
  Sender: FDA-Public Use
  Company Number: 20090468

PATIENT
  Age: 70 Year
  Sex: Male

DRUGS (17)
  1. DEXAMETHASONE SODIUM PHOSPHATE [Suspect]
     Indication: MULTIPLE MYELOMA
  2. MELOXICAM [Suspect]
  3. PEG-3350 [Concomitant]
  4. TESTOSTERONE ENANTHATE [Concomitant]
  5. VANCOMYCIN [Concomitant]
  6. FLUCONAZOLE [Concomitant]
  7. MORPHINE [Concomitant]
  8. PARACETAMOL [Concomitant]
  9. HEPARIN [Concomitant]
  10. ENOXAPARIN [Concomitant]
  11. RANITIDINE [Concomitant]
  12. HYDROCODONE [Concomitant]
  13. OMEPRAZOLE [Concomitant]
  14. PROMETHAZINE [Concomitant]
  15. LIDOCAINE [Concomitant]
  16. PAMIDRONIC ACID [Concomitant]
  17. CEFEPIME [Concomitant]

REACTIONS (12)
  - ACUTE GENERALISED EXANTHEMATOUS PUSTULOSIS [None]
  - ATRIAL FIBRILLATION [None]
  - BACK PAIN [None]
  - BACTERIAL TEST POSITIVE [None]
  - BLISTER [None]
  - FEBRILE NEUTROPENIA [None]
  - HAEMATOCRIT DECREASED [None]
  - HAEMOGLOBIN DECREASED [None]
  - ORAL CANDIDIASIS [None]
  - PHARYNGITIS [None]
  - PSEUDOMONAS INFECTION [None]
  - STREPTOCOCCAL INFECTION [None]
